FAERS Safety Report 8992197 (Version 2)
Quarter: 2013Q1

REPORT INFORMATION
  Report Type: Report from Study
  Country: BE (occurrence: BE)
  Receive Date: 20121231
  Receipt Date: 20130313
  Transmission Date: 20140127
  Serious: Yes (Other)
  Sender: FDA-Public Use
  Company Number: BE-ABBOTT-12P-013-1028083-00

PATIENT
  Age: 65 Year
  Sex: Male

DRUGS (3)
  1. HUMIRA [Suspect]
     Indication: RHEUMATOID ARTHRITIS
     Dates: start: 20050928
  2. HUMIRA [Suspect]
     Indication: POLYARTHRITIS
  3. LEFLUNOMIDE [Concomitant]
     Indication: RHEUMATOID ARTHRITIS
     Dates: start: 20060626

REACTIONS (2)
  - Skin lesion [Unknown]
  - Follicle centre lymphoma, follicular grade I, II, III [Unknown]
